FAERS Safety Report 8971132 (Version 1)
Quarter: 2012Q4

REPORT INFORMATION
  Report Type: 
  Country: DE (occurrence: DE)
  Receive Date: 20121217
  Receipt Date: 20121217
  Transmission Date: 20130627
  Serious: Yes (Hospitalization)
  Sender: FDA-Public Use
  Company Number: DE-PFIZER INC-2012315230

PATIENT
  Age: 45 Year
  Sex: Female
  Weight: 99 kg

DRUGS (9)
  1. GENOTROPIN [Suspect]
     Dosage: 0.4 mg, 1x/day, 7injections/week
     Route: 058
     Dates: start: 20090209
  2. LEVOTHYROXINE [Concomitant]
     Indication: TSH DECREASED
     Dosage: UNK
     Dates: start: 19970915
  3. LEVOTHYROXINE [Concomitant]
     Indication: PRIMARY HYPOTHYROIDISM
  4. HYDROCORTISONE [Concomitant]
     Indication: ACTH DECREASED
     Dosage: UNK
     Dates: start: 20090210
  5. REMIFEMIN [Concomitant]
     Indication: LUTEINIZING HORMONE DEFICIENCY
     Dosage: UNK
     Dates: start: 20090210
  6. REMIFEMIN [Concomitant]
     Indication: FOLLICLE-STIMULATING HORMONE DEFICIENCY
  7. REMIFEMIN [Concomitant]
     Indication: OVARIAN DISORDER
  8. REMIFEMIN [Concomitant]
     Indication: HYPOGONADISM
  9. VALSARTAN [Concomitant]
     Indication: ESSENTIAL HYPERTENSION
     Dosage: UNK
     Dates: start: 20090210

REACTIONS (1)
  - Skin disorder [Unknown]
